FAERS Safety Report 12784866 (Version 1)
Quarter: 2016Q3

REPORT INFORMATION
  Report Type: Spontaneous
  Country: HK (occurrence: HK)
  Receive Date: 20160927
  Receipt Date: 20160927
  Transmission Date: 20161109
  Serious: Yes (Death, Other)
  Sender: FDA-Public Use
  Company Number: PHHY2016HK131701

PATIENT
  Age: 55 Year
  Sex: Female

DRUGS (4)
  1. AFINITOR [Suspect]
     Active Substance: EVEROLIMUS
     Indication: BREAST CANCER
     Dosage: UNK
     Route: 065
  2. AFINITOR [Suspect]
     Active Substance: EVEROLIMUS
     Dosage: 5 MG, QOD
     Route: 065
  3. AFINITOR [Suspect]
     Active Substance: EVEROLIMUS
     Dosage: 5 MG, QD
     Route: 065
  4. AROMASIN [Suspect]
     Active Substance: EXEMESTANE
     Indication: PRODUCT USED FOR UNKNOWN INDICATION
     Dosage: UNK
     Route: 065
     Dates: start: 201309

REACTIONS (20)
  - Malignant neoplasm progression [Unknown]
  - Lymphadenopathy [Unknown]
  - Cough [Unknown]
  - Blood bilirubin increased [Unknown]
  - Lung infiltration [Recovering/Resolving]
  - Hypercalcaemia [Unknown]
  - Pneumonitis [Unknown]
  - Tachypnoea [Unknown]
  - Death [Fatal]
  - Metastases to liver [Recovering/Resolving]
  - Metastases to skin [Unknown]
  - Skin mass [Unknown]
  - General physical health deterioration [Unknown]
  - Stomatitis [Unknown]
  - Blood triglycerides increased [Unknown]
  - Hepatic failure [Unknown]
  - Metastases to lymph nodes [Unknown]
  - Hepatomegaly [Unknown]
  - Blood cholesterol increased [Unknown]
  - Dyspnoea [Recovering/Resolving]

NARRATIVE: CASE EVENT DATE: 201405
